FAERS Safety Report 5385027-8 (Version None)
Quarter: 2007Q3

REPORT INFORMATION
  Report Type: 
  Country: None (occurrence: None)
  Receive Date: 20070710
  Receipt Date: 20070710
  Transmission Date: 20080115
  Serious: No
  Sender: FDA-Public Use
  Company Number: None

PATIENT
  Sex: Male
  Weight: 120.2032 kg

DRUGS (1)
  1. REQUIP [Suspect]
     Indication: RESTLESS LEGS SYNDROME
     Dosage: 2 TABLETS DAILY PO
     Route: 048
     Dates: start: 20070703, end: 20070706

REACTIONS (5)
  - DRUG DISPENSING ERROR [None]
  - FEELING ABNORMAL [None]
  - MEDICATION ERROR [None]
  - NAUSEA [None]
  - WRONG DRUG ADMINISTERED [None]
